FAERS Safety Report 9620100 (Version 2)
Quarter: 2013Q4

REPORT INFORMATION
  Report Type: Spontaneous
  Country: US (occurrence: US)
  Receive Date: 20131014
  Receipt Date: 20131030
  Transmission Date: 20140711
  Serious: No
  Sender: FDA-Public Use
  Company Number: US-BAXTER-2013BAX038618

PATIENT
  Age: 79 Year
  Sex: Female
  Weight: 64.47 kg

DRUGS (1)
  1. GAMMAGARD LIQUID [Suspect]
     Indication: IMMUNODEFICIENCY COMMON VARIABLE
     Route: 042
     Dates: start: 20130730

REACTIONS (8)
  - Headache [Recovered/Resolved]
  - Confusional state [Recovered/Resolved]
  - Hangover [Unknown]
  - Disorientation [Recovered/Resolved]
  - Memory impairment [Recovered/Resolved]
  - Drug dose omission [Recovered/Resolved]
  - Hypoaesthesia [Recovered/Resolved]
  - Confusional state [Not Recovered/Not Resolved]
